FAERS Safety Report 20679458 (Version 1)
Quarter: 2022Q2

REPORT INFORMATION
  Report Type: Spontaneous
  Country: US (occurrence: None)
  Receive Date: 20220405
  Receipt Date: 20220405
  Transmission Date: 20220721
  Serious: No
  Sender: FDA-Public Use
  Company Number: None

PATIENT
  Age: 58 Year
  Sex: Male
  Weight: 65.25 kg

DRUGS (1)
  1. HYLENEX RECOMBINANT [Suspect]
     Active Substance: HYALURONIDASE (HUMAN RECOMBINANT)
     Indication: Drug therapy
     Dates: start: 20210206, end: 20210206

REACTIONS (7)
  - Injection site extravasation [None]
  - Skin discolouration [None]
  - Skin exfoliation [None]
  - Dry eye [None]
  - Musculoskeletal disorder [None]
  - Impaired quality of life [None]
  - Product complaint [None]

NARRATIVE: CASE EVENT DATE: 20210206
